FAERS Safety Report 6410219-6 (Version None)
Quarter: 2009Q4

REPORT INFORMATION
  Report Type: 
  Country: None (occurrence: None)
  Receive Date: 20091022
  Receipt Date: 20091012
  Transmission Date: 20100525
  Serious: Yes (Hospitalization)
  Sender: FDA-Public Use
  Company Number: PHHY2009FR44507

PATIENT
  Sex: Male

DRUGS (5)
  1. ZOMETA [Suspect]
     Dosage: UNK
     Dates: start: 20090606
  2. PROSCAR [Suspect]
     Dosage: 1 DF/DAY
  3. ZYLORIC [Concomitant]
     Dosage: 250 MG/DAY
  4. SPIRONOLACTONE [Concomitant]
     Dosage: 25 MG/DAY
  5. TEMERIT [Concomitant]
     Dosage: 0.5 DF/DAY

REACTIONS (1)
  - HEPATIC ENZYME INCREASED [None]
